FAERS Safety Report 8611764-5 (Version None)
Quarter: 2012Q3

REPORT INFORMATION
  Report Type: 
  Country: None (occurrence: None)
  Receive Date: 20120822
  Receipt Date: 20120814
  Transmission Date: 20120928
  Serious: Yes (Hospitalization)
  Sender: FDA-Public Use
  Company Number: US-BAYER-2012-039698

PATIENT
  Age: 46 Year
  Sex: Female

DRUGS (9)
  1. YAZ [Suspect]
     Dosage: UNK
     Dates: start: 20100301
  2. TOPAMAX [Concomitant]
     Dosage: 50 MG IN THE MORNING
  3. TOPAMAX [Concomitant]
     Dosage: 100 MG, EVENING
  4. TRAZODONE HYDROCHLORIDE [Concomitant]
     Dosage: 150 MG, NIGHTLY
  5. BUTALBITAL [Concomitant]
     Indication: MIGRAINE
     Dosage: UNK UNK, PRN
  6. ZOLOFT [Concomitant]
     Dosage: 100 MG, UNK
  7. KLONOPIN [Concomitant]
     Dosage: 1 MG, NIGHTLY
  8. NASACORT [Concomitant]
     Dosage: NIGHTLY
  9. TRAMADOL HCL [Concomitant]
     Indication: MIGRAINE
     Dosage: UNK UNK, PRN

REACTIONS (4)
  - DEEP VEIN THROMBOSIS [None]
  - PULMONARY EMBOLISM [None]
  - INJURY [None]
  - PAIN [None]
